FAERS Safety Report 8244101-9 (Version None)
Quarter: 2012Q1

REPORT INFORMATION
  Report Type: 
  Country: None (occurrence: None)
  Receive Date: 20120329
  Receipt Date: 20120314
  Transmission Date: 20120608
  Serious: Yes (Other)
  Sender: FDA-Public Use
  Company Number: US-WATSON-2012-04572

PATIENT
  Age: 60 Year
  Sex: Male

DRUGS (2)
  1. NICOTROL [Concomitant]
     Indication: SMOKING CESSATION THERAPY
     Dosage: UNK
     Route: 065
  2. NICOTINE POLACRILEX (REGULAR) (WATSON LABORATORIES) [Suspect]
     Indication: SMOKING CESSATION THERAPY
     Dosage: CHEWS 10-12 PIECES DAILY
     Route: 002
     Dates: start: 20120207

REACTIONS (1)
  - OESOPHAGEAL VARICES HAEMORRHAGE [None]
